FAERS Safety Report 24006336 (Version 1)
Quarter: 2024Q2

REPORT INFORMATION
  Report Type: Spontaneous
  Country: US (occurrence: US)
  Receive Date: 20240624
  Receipt Date: 20240624
  Transmission Date: 20240716
  Serious: No
  Sender: FDA-Public Use
  Company Number: US-TAIHOP-2024-006177

PATIENT
  Age: 62 Year
  Sex: Male

DRUGS (2)
  1. LONSURF [Suspect]
     Active Substance: TIPIRACIL HYDROCHLORIDE\TRIFLURIDINE
     Indication: Metastases to liver
     Dosage: CYCLE UNKNOWN
     Route: 048
     Dates: start: 20240327
  2. LONSURF [Suspect]
     Active Substance: TIPIRACIL HYDROCHLORIDE\TRIFLURIDINE
     Indication: Cholangiocarcinoma

REACTIONS (2)
  - Disease progression [Unknown]
  - Off label use [Unknown]
